FAERS Safety Report 7934972-5 (Version None)
Quarter: 2011Q4

REPORT INFORMATION
  Report Type: 
  Country: None (occurrence: None)
  Receive Date: 20111122
  Receipt Date: 20111111
  Transmission Date: 20120403
  Serious: No
  Sender: FDA-Public Use
  Company Number: US-B.I. PHARMACEUTICALS,INC./RIDGEFIELD-2011-BP-26130BP

PATIENT
  Sex: Female

DRUGS (12)
  1. LYRICA [Concomitant]
     Indication: NEUROPATHY PERIPHERAL
     Dosage: 15 MG
     Route: 048
  2. PARAFON FORTE [Concomitant]
     Indication: MYALGIA
     Route: 048
  3. MULTI-VITAMINS [Concomitant]
     Indication: SUPPLEMENTATION THERAPY
  4. DETROL LA [Concomitant]
     Indication: POLLAKIURIA
     Dosage: 2 MG
     Route: 048
  5. ACIPHEX [Concomitant]
     Indication: GASTROOESOPHAGEAL REFLUX DISEASE
     Dosage: 20 MG
     Route: 048
  6. XANAX [Concomitant]
     Indication: ANXIETY
     Dosage: 0.5 MG
     Route: 048
  7. PRADAXA [Suspect]
     Indication: ATRIAL FIBRILLATION
     Dosage: 300 MG
     Route: 048
     Dates: start: 20110801
  8. FOLIC ACID [Concomitant]
     Indication: VITAMIN SUPPLEMENTATION
     Dosage: 1 MG
     Route: 048
  9. CARDIZEM [Concomitant]
     Indication: HYPERTENSION
     Dosage: 240 MG
     Route: 048
  10. LASIX [Concomitant]
     Indication: CARDIAC FAILURE CONGESTIVE
     Dosage: 80 MG
     Route: 048
  11. POTASSIUM [Concomitant]
     Indication: MINERAL SUPPLEMENTATION
     Dosage: 20 MEQ
     Route: 048
  12. CALTRATE PLUS VITAMIN D [Concomitant]
     Indication: SUPPLEMENTATION THERAPY
     Dosage: 600 MG
     Route: 048

REACTIONS (2)
  - MALAISE [None]
  - ABDOMINAL PAIN UPPER [None]
